FAERS Safety Report 7616842-5 (Version None)
Quarter: 2011Q3

REPORT INFORMATION
  Report Type: 
  Country: None (occurrence: None)
  Receive Date: 20110718
  Receipt Date: 20110707
  Transmission Date: 20111222
  Serious: No
  Sender: FDA-Public Use
  Company Number: US-BIOGENIDEC-2011BI023372

PATIENT
  Age: 35 Year
  Sex: Female

DRUGS (1)
  1. TYSABRI [Suspect]
     Indication: MULTIPLE SCLEROSIS
     Route: 042
     Dates: start: 20071130

REACTIONS (8)
  - PAIN [None]
  - BACK DISORDER [None]
  - THROAT IRRITATION [None]
  - SENSORY DISTURBANCE [None]
  - NASOPHARYNGITIS [None]
  - GENERAL SYMPTOM [None]
  - MIGRAINE [None]
  - URINARY TRACT INFECTION [None]
